FAERS Safety Report 9971074 (Version 1)
Quarter: 2014Q1

REPORT INFORMATION
  Report Type: Spontaneous
  Country: US (occurrence: None)
  Receive Date: 20140305
  Receipt Date: 20140305
  Transmission Date: 20141002
  Serious: Yes (Disabling)
  Sender: FDA-Public Use
  Company Number: None

PATIENT
  Age: 73 Year
  Sex: Male
  Weight: 74.84 kg

DRUGS (11)
  1. LIVALO [Suspect]
     Indication: BLOOD CHOLESTEROL INCREASED
     Dosage: 1 PILL
     Route: 048
     Dates: start: 20140227, end: 20140301
  2. PLAVIIX/CLOPIDOGREL [Concomitant]
  3. ZETIA [Concomitant]
  4. ALLOPURINOL [Concomitant]
  5. RAMIPRIL [Concomitant]
  6. METOPROLOL SUCC ER [Concomitant]
  7. LIVALO [Concomitant]
  8. STATIN [Concomitant]
  9. PRILOSEC [Concomitant]
  10. COQ10 [Concomitant]
  11. OMEGA 3 [Concomitant]

REACTIONS (3)
  - Myalgia [None]
  - Spinal pain [None]
  - Hypoaesthesia [None]
